FAERS Safety Report 9038026 (Version 1)
Quarter: 2013Q1

REPORT INFORMATION
  Report Type: Report from Study
  Country: US (occurrence: US)
  Receive Date: 20130129
  Receipt Date: 20130129
  Transmission Date: 20140127
  Serious: No
  Sender: FDA-Public Use
  Company Number: US-ABBOTT-12P-163-0921634-00

PATIENT
  Age: 59 Year
  Sex: Female

DRUGS (12)
  1. HUMIRA 40 MG/0.8 ML PEN [Suspect]
     Indication: PSORIASIS
     Dosage: LOADING DOSE
     Dates: start: 20120403
  2. LANTUS [Concomitant]
     Indication: DIABETES MELLITUS
  3. HUMALOG [Concomitant]
     Indication: DIABETES MELLITUS
  4. LYRICA [Concomitant]
     Indication: FIBROMYALGIA
  5. LISINOPRIL [Concomitant]
     Indication: BLOOD PRESSURE
  6. COGENTIN [Concomitant]
     Indication: MENTAL DISORDER
  7. INVEGA [Concomitant]
     Indication: MENTAL DISORDER
  8. LEXEPRO [Concomitant]
     Indication: MENTAL DISORDER
  9. TEMAZEPAM [Concomitant]
     Indication: INSOMNIA
  10. SINGULAIR [Concomitant]
     Indication: HYPERSENSITIVITY
  11. ZYRTEC [Concomitant]
     Indication: HYPERSENSITIVITY
  12. DETROL [Concomitant]
     Indication: BLADDER DISORDER

REACTIONS (2)
  - Skin fissures [Not Recovered/Not Resolved]
  - Wound [Not Recovered/Not Resolved]
